FAERS Safety Report 23952526 (Version 2)
Quarter: 2024Q2

REPORT INFORMATION
  Report Type: Spontaneous
  Country: TW (occurrence: TW)
  Receive Date: 20240607
  Receipt Date: 20240619
  Transmission Date: 20240716
  Serious: Yes (Other)
  Sender: FDA-Public Use
  Company Number: TW-002147023-NVSC2024TW114779

PATIENT
  Sex: Male

DRUGS (6)
  1. RUXOLITINIB [Suspect]
     Active Substance: RUXOLITINIB
     Indication: B-cell type acute leukaemia
     Dosage: UNK, BID (40MG/DAY BID)
     Route: 065
     Dates: start: 20211004, end: 20211006
  2. RUXOLITINIB [Suspect]
     Active Substance: RUXOLITINIB
     Dosage: UNK
     Route: 065
     Dates: start: 20211023
  3. TISAGENLECLEUCEL [Suspect]
     Active Substance: TISAGENLECLEUCEL
     Indication: B-cell type acute leukaemia
     Dosage: UNK UNK, ONCE/SINGLE (0.2 TO 5.0 X 10^6 CAR-POSITIVE VIABLE T CELLS PER KG OF BODY WEIGHT)
     Route: 042
     Dates: start: 20240227, end: 20240227
  4. INOTUZUMAB OZOGAMICIN [Concomitant]
     Active Substance: INOTUZUMAB OZOGAMICIN
     Indication: Product used for unknown indication
     Dosage: UNK
     Route: 065
     Dates: start: 20220122
  5. INOTUZUMAB OZOGAMICIN [Concomitant]
     Active Substance: INOTUZUMAB OZOGAMICIN
     Dosage: UNK
     Route: 065
     Dates: start: 20230804
  6. RITUXIMAB [Concomitant]
     Active Substance: RITUXIMAB
     Indication: Product used for unknown indication
     Dosage: UNK, QW
     Route: 065
     Dates: start: 20221004, end: 20221130

REACTIONS (5)
  - Thrombocytopenia [Unknown]
  - B-cell type acute leukaemia [Unknown]
  - Disease recurrence [Unknown]
  - Post-depletion B-cell recovery [Unknown]
  - Off label use [Unknown]
